FAERS Safety Report 25602475 (Version 2)
Quarter: 2025Q3

REPORT INFORMATION
  Report Type: Spontaneous
  Country: EU (occurrence: EU)
  Receive Date: 20250724
  Receipt Date: 20250730
  Transmission Date: 20251020
  Serious: No
  Sender: ESPERION THERAPEUTICS
  Company Number: EU-AstraZeneca-CH-00908699A

PATIENT
  Sex: Male

DRUGS (3)
  1. BEMPEDOIC ACID\EZETIMIBE [Suspect]
     Active Substance: BEMPEDOIC ACID\EZETIMIBE
     Indication: Cardiomyopathy
     Route: 065
     Dates: end: 20250312
  2. KOSELUGO [Suspect]
     Active Substance: SELUMETINIB
     Indication: Product used for unknown indication
     Dosage: 50 MG, QD (25 MILLIGRAM, BID)
     Route: 048
     Dates: start: 20240805, end: 202410
  3. KOSELUGO [Suspect]
     Active Substance: SELUMETINIB
     Dosage: 25 MG, QD
     Route: 048
     Dates: end: 20250312

REACTIONS (2)
  - Blood creatine phosphokinase increased [Recovered/Resolved]
  - Off label use [Unknown]

NARRATIVE: CASE EVENT DATE: 20241001
